FAERS Safety Report 18307231 (Version 1)
Quarter: 2020Q3

REPORT INFORMATION
  Report Type: Spontaneous
  Country: RO (occurrence: RO)
  Receive Date: 20200924
  Receipt Date: 20200924
  Transmission Date: 20201103
  Serious: Yes (Life-Threatening, Hospitalization)
  Sender: FDA-Public Use
  Company Number: RO-TEVA-2020-RO-1829914

PATIENT
  Age: 60 Year
  Sex: Male

DRUGS (3)
  1. FOLCASIN [Suspect]
     Active Substance: LEUCOVORIN CALCIUM
     Dosage: 700 MG
     Route: 042
     Dates: start: 20200818
  2. BEVACIZUMAB. [Concomitant]
     Active Substance: BEVACIZUMAB
     Dosage: 370 MG
     Route: 042
  3. TENAXUM [Concomitant]
     Active Substance: RILMENIDINE
     Dosage: 10 MG

REACTIONS (3)
  - Chills [Recovered/Resolved]
  - Vomiting [Recovered/Resolved]
  - Nausea [Recovered/Resolved]

NARRATIVE: CASE EVENT DATE: 20200818
